FAERS Safety Report 8653030 (Version 2)
Quarter: 2012Q4

REPORT INFORMATION
  Report Type: 
  Country: US (occurrence: US)
  Receive Date: 20120706
  Receipt Date: 20120904
  Transmission Date: 20130627
  Serious: Yes (Hospitalization)
  Sender: FDA-Public Use
  Company Number: US-SANOFI-AVENTIS-2012SA046793

PATIENT
  Age: 62 Year
  Sex: Female
  Weight: 125.64 kg

DRUGS (7)
  1. LANTUS [Suspect]
     Indication: DIABETES MELLITUS
     Dosage: Dose:20 unit(s)
     Route: 058
     Dates: start: 2000
  2. ALBUTEROL [Suspect]
     Route: 065
     Dates: start: 2000
  3. SPIRIVA [Suspect]
     Indication: COPD
     Dosage: 2 puffs 4 times a day
     Route: 065
  4. THEOPHYLLINE [Concomitant]
  5. METFORMIN [Concomitant]
     Indication: DIABETES MELLITUS
  6. AMLODIPINE BESILATE [Concomitant]
     Indication: HYPERTENSION
  7. ISOSORBIDE [Concomitant]
     Indication: CORONARY ARTERY DISEASE

REACTIONS (3)
  - Cardiac failure congestive [Unknown]
  - Dyspnoea [Unknown]
  - Blood glucose increased [Not Recovered/Not Resolved]
